FAERS Safety Report 5765197-X (Version None)
Quarter: 2008Q2

REPORT INFORMATION
  Report Type: 
  Country: None (occurrence: None)
  Receive Date: 20080611
  Receipt Date: 20080602
  Transmission Date: 20081010
  Serious: No
  Sender: FDA-Public Use
  Company Number: US-ELI_LILLY_AND_COMPANY-US200806000503

PATIENT
  Sex: Male

DRUGS (4)
  1. CYMBALTA [Suspect]
     Indication: DEPRESSION
     Dosage: 20 MG, DAILY (1/D)
     Dates: start: 20050101, end: 20080101
  2. ZYPREXA [Concomitant]
     Indication: BIPOLAR DISORDER
     Dosage: 1 D/F, UNK
  3. COZAAR [Concomitant]
     Indication: BLOOD PRESSURE INCREASED
     Dosage: 1 D/F, UNK
     Dates: end: 20080101
  4. LISINOPRIL [Concomitant]
     Indication: BLOOD PRESSURE INCREASED
     Dosage: 1 D/F, UNK
     Dates: start: 20080101

REACTIONS (1)
  - ALANINE AMINOTRANSFERASE INCREASED [None]
